FAERS Safety Report 26161456 (Version 1)
Quarter: 2025Q4

REPORT INFORMATION
  Report Type: Spontaneous
  Country: EU (occurrence: EU)
  Receive Date: 20251216
  Receipt Date: 20251216
  Transmission Date: 20260117
  Serious: Yes (Other)
  Sender: TEVA
  Company Number: None

PATIENT
  Age: 30 Year
  Sex: Female
  Weight: 50 kg

DRUGS (1)
  1. FREMANEZUMAB [Suspect]
     Active Substance: FREMANEZUMAB
     Indication: Migraine
     Dosage: 3 DOSES APPLIED TO 3 DIFFERENT LOCATIONS EVERY 3 MONTHS, / AJOVY INJ, OPPL 225 MG/PENN
     Route: 058
     Dates: start: 20241217, end: 20250317

REACTIONS (3)
  - Bipolar disorder [Not Recovered/Not Resolved]
  - Depression [Recovering/Resolving]
  - Weight decreased [Recovering/Resolving]

NARRATIVE: CASE EVENT DATE: 20250101
